FAERS Safety Report 9395744 (Version 3)
Quarter: 2013Q3

REPORT INFORMATION
  Report Type: Spontaneous
  Country: JP (occurrence: JP)
  Receive Date: 20130711
  Receipt Date: 20130905
  Transmission Date: 20140515
  Serious: Yes (Hospitalization)
  Sender: FDA-Public Use
  Company Number: JP-PFIZER INC-2013202314

PATIENT
  Age: 85 Year
  Sex: Female
  Weight: 31.3 kg

DRUGS (7)
  1. LIPITOR [Suspect]
     Indication: HYPERLIPIDAEMIA
     Dosage: 5 MG, 1X/DAY
     Route: 048
     Dates: end: 20130704
  2. NEXIUM [Suspect]
     Dosage: 10 MG, 1X/DAY
     Route: 048
     Dates: end: 20130704
  3. DEPAS [Suspect]
     Dosage: 0.5 MG, 1X/DAY
     Route: 048
     Dates: end: 20130704
  4. ALDACTONE-A [Concomitant]
     Indication: MITRAL VALVE INCOMPETENCE
     Dosage: UNK
     Route: 048
  5. LASIX [Concomitant]
     Indication: MITRAL VALVE INCOMPETENCE
     Dosage: UNK
     Route: 065
  6. FEBURIC [Concomitant]
     Indication: RENAL IMPAIRMENT
     Dosage: UNK
     Route: 048
  7. FRANDOL [Concomitant]
     Indication: MITRAL VALVE INCOMPETENCE
     Dosage: TAPE

REACTIONS (1)
  - Interstitial lung disease [Recovering/Resolving]
